FAERS Safety Report 21458743 (Version 1)
Quarter: 2022Q4

REPORT INFORMATION
  Report Type: Spontaneous
  Country: CA (occurrence: CA)
  Receive Date: 20221014
  Receipt Date: 20221014
  Transmission Date: 20230113
  Serious: Yes (Other)
  Sender: FDA-Public Use
  Company Number: CA-PFIZER INC-2019249218

PATIENT
  Age: 64 Year
  Sex: Male

DRUGS (2)
  1. XELJANZ [Suspect]
     Active Substance: TOFACITINIB CITRATE
     Indication: Psoriatic arthropathy
     Dosage: 5 MG, TWICE DAILY
     Route: 048
     Dates: start: 20190716, end: 20200806
  2. DICLOFENAC [Concomitant]
     Active Substance: DICLOFENAC
     Dosage: 15 MG, 2X/DAY
     Route: 065
     Dates: start: 201910

REACTIONS (5)
  - Shoulder operation [Unknown]
  - Therapeutic product effect incomplete [Unknown]
  - Skin laceration [Unknown]
  - Impaired healing [Unknown]
  - Immune system disorder [Unknown]

NARRATIVE: CASE EVENT DATE: 20190101
